FAERS Safety Report 24830235 (Version 1)
Quarter: 2025Q1

REPORT INFORMATION
  Report Type: Spontaneous
  Country: US (occurrence: None)
  Receive Date: 20250109
  Receipt Date: 20250109
  Transmission Date: 20250409
  Serious: No
  Sender: FDA-CTU
  Company Number: None

PATIENT
  Age: 78 Year
  Sex: Female
  Weight: 82.5 kg

DRUGS (1)
  1. CARVYKTI [Suspect]
     Active Substance: CILTACABTAGENE AUTOLEUCEL
     Indication: Plasma cell myeloma
     Route: 042
     Dates: end: 20241211

REACTIONS (14)
  - Febrile neutropenia [None]
  - Cytokine release syndrome [None]
  - Pancytopenia [None]
  - Haemophagocytic lymphohistiocytosis [None]
  - Immune effector cell-associated neurotoxicity syndrome [None]
  - Seizure like phenomena [None]
  - Mental status changes [None]
  - Bacteraemia [None]
  - Pneumonia [None]
  - Cerebrovascular accident [None]
  - Acute kidney injury [None]
  - Liver injury [None]
  - Cardiac failure [None]
  - Multiple organ dysfunction syndrome [None]

NARRATIVE: CASE EVENT DATE: 20250106
